FAERS Safety Report 19120574 (Version 1)
Quarter: 2021Q2

REPORT INFORMATION
  Report Type: Spontaneous
  Country: US (occurrence: US)
  Receive Date: 20210409
  Receipt Date: 20210409
  Transmission Date: 20210717
  Serious: Yes (Other)
  Sender: FDA-Public Use
  Company Number: None

PATIENT
  Age: 25 Year
  Sex: Female
  Weight: 65.25 kg

DRUGS (1)
  1. DROSPIRENONE?ETHINYL ESTRADIOL 3?0.02 MG ORAL TAB [Suspect]
     Active Substance: DROSPIRENONE\ETHINYL ESTRADIOL
     Indication: GYNAECOLOGICAL EXAMINATION
     Route: 048
     Dates: start: 20210223, end: 20210409

REACTIONS (4)
  - Product substitution issue [None]
  - Headache [None]
  - Acne [None]
  - Nausea [None]

NARRATIVE: CASE EVENT DATE: 20210402
